FAERS Safety Report 12972291 (Version 3)
Quarter: 2017Q1

REPORT INFORMATION
  Report Type: Spontaneous
  Country: GB (occurrence: GB)
  Receive Date: 20161124
  Receipt Date: 20170109
  Transmission Date: 20170428
  Serious: Yes (Death)
  Sender: FDA-Public Use
  Company Number: GB-JNJFOC-20161119234

PATIENT
  Age: 68 Year
  Sex: Female
  Weight: 93 kg

DRUGS (12)
  1. CEFUROXIME. [Suspect]
     Active Substance: CEFUROXIME
     Indication: PROPHYLAXIS
     Dosage: DOSE: 1.5 (UNIT NOT REPORTED)
     Route: 065
     Dates: start: 20160929, end: 20160929
  2. PROPOFOL. [Suspect]
     Active Substance: PROPOFOL
     Indication: GENERAL ANAESTHESIA
     Dosage: DOSE: 130 (UNIT NOT REPORTED)
     Route: 065
     Dates: start: 20160929, end: 20160929
  3. CODEINE [Concomitant]
     Active Substance: CODEINE
     Indication: PRODUCT USED FOR UNKNOWN INDICATION
     Route: 065
  4. GABAPENTIN. [Concomitant]
     Active Substance: GABAPENTIN
     Indication: PRODUCT USED FOR UNKNOWN INDICATION
     Route: 065
  5. MORPHINE [Suspect]
     Active Substance: MORPHINE
     Indication: PERIOPERATIVE ANALGESIA
     Dosage: DOSE: 4 (UNIT NOT REPORTED)
     Route: 065
     Dates: start: 20160929, end: 20160929
  6. ATRACURIUM [Suspect]
     Active Substance: ATRACURIUM
     Indication: HYPOTONIA
     Dosage: DOSE: 50 (UNIT NOT REPORTED)
     Route: 065
     Dates: start: 20160929, end: 20160929
  7. CLOPIDOGREL [Concomitant]
     Active Substance: CLOPIDOGREL BISULFATE
     Indication: PRODUCT USED FOR UNKNOWN INDICATION
     Route: 065
  8. LISINOPRIL. [Concomitant]
     Active Substance: LISINOPRIL
     Indication: PRODUCT USED FOR UNKNOWN INDICATION
     Route: 065
  9. METFORMIN [Concomitant]
     Active Substance: METFORMIN HYDROCHLORIDE
     Indication: PRODUCT USED FOR UNKNOWN INDICATION
     Route: 065
  10. PHENYLEPHRINE [Suspect]
     Active Substance: PHENYLEPHRINE\PHENYLEPHRINE HYDROCHLORIDE
     Indication: BLOOD PRESSURE DECREASED
     Route: 065
     Dates: start: 20160929, end: 20160929
  11. PARACETAMOL [Concomitant]
     Active Substance: ACETAMINOPHEN
     Indication: PRODUCT USED FOR UNKNOWN INDICATION
     Route: 065
  12. TEICOPLANIN [Suspect]
     Active Substance: TEICOPLANIN
     Indication: PROPHYLAXIS
     Dosage: DOSE: 400 (UNIT NOT REPORTED), ONE DOSE
     Route: 065
     Dates: start: 20160929, end: 20160929

REACTIONS (7)
  - Cardiac arrest [Fatal]
  - Hypotension [Fatal]
  - Arteriospasm coronary [Fatal]
  - Pulseless electrical activity [Fatal]
  - Myocardial infarction [Fatal]
  - Off label use [Unknown]
  - Product use issue [Unknown]

NARRATIVE: CASE EVENT DATE: 20160929
